FAERS Safety Report 16556210 (Version 3)
Quarter: 2020Q1

REPORT INFORMATION
  Report Type: Spontaneous
  Country: US (occurrence: US)
  Receive Date: 20190710
  Receipt Date: 20200218
  Transmission Date: 20200409
  Serious: Yes (Death, Hospitalization, Other)
  Sender: FDA-Public Use
  Company Number: US-PFIZER INC-2019296197

PATIENT
  Age: 67 Year
  Sex: Female
  Weight: 47.17 kg

DRUGS (2)
  1. RAPAMUNE [Suspect]
     Active Substance: SIROLIMUS
     Indication: TRANSPLANT REJECTION
  2. RAPAMUNE [Suspect]
     Active Substance: SIROLIMUS
     Indication: LIVER TRANSPLANT
     Dosage: 2 MG, ALTERNATE DAY (ONCE DAILY EVERY OTHER DAY)
     Route: 048
     Dates: start: 2013

REACTIONS (6)
  - Transplant rejection [Unknown]
  - Renal failure [Fatal]
  - Product use in unapproved indication [Unknown]
  - Off label use [Unknown]
  - Myocardial infarction [Recovering/Resolving]
  - Biliary tract disorder [Unknown]

NARRATIVE: CASE EVENT DATE: 20200127
